FAERS Safety Report 25156116 (Version 5)
Quarter: 2025Q4

REPORT INFORMATION
  Report Type: Report from Study
  Country: US (occurrence: US)
  Receive Date: 20250403
  Receipt Date: 20251009
  Transmission Date: 20260118
  Serious: No
  Sender: AVERITAS
  Company Number: US-GRUNENTHAL-2025-104757

PATIENT
  Age: 84 Year
  Sex: Female

DRUGS (2)
  1. QUTENZA [Suspect]
     Active Substance: CAPSAICIN
     Indication: Diabetic neuropathy
     Dosage: UNK, ONCE
     Route: 061
     Dates: start: 20250327, end: 20250327
  2. QUTENZA [Suspect]
     Active Substance: CAPSAICIN
     Dosage: UNK, ONCE
     Route: 061
     Dates: start: 20250709, end: 20250709

REACTIONS (10)
  - Application site pain [Unknown]
  - Back disorder [Unknown]
  - Arthralgia [Unknown]
  - Dyspnoea exertional [Unknown]
  - Dizziness [Unknown]
  - Joint noise [Unknown]
  - Paraesthesia [Unknown]
  - Burning sensation [Unknown]
  - Pain in extremity [Unknown]
  - Pain [Unknown]

NARRATIVE: CASE EVENT DATE: 20250327
